FAERS Safety Report 10873448 (Version 1)
Quarter: 2015Q1

REPORT INFORMATION
  Report Type: Report from Study
  Country: CA (occurrence: None)
  Receive Date: 20150224
  Receipt Date: 20150224
  Transmission Date: 20150721
  Serious: Yes (Death)
  Sender: FDA-Public Use
  Company Number: 2747732

PATIENT
  Age: 47 Year
  Sex: Male
  Weight: 79 kg

DRUGS (19)
  1. COLACE [Concomitant]
     Active Substance: DOCUSATE SODIUM
  2. PAMIDRONATE DISODIUM. [Concomitant]
     Active Substance: PAMIDRONATE DISODIUM
  3. LACTULOSE. [Concomitant]
     Active Substance: LACTULOSE
  4. DEXAMETHASONE. [Concomitant]
     Active Substance: DEXAMETHASONE
  5. SENOKOT [Concomitant]
     Active Substance: SENNOSIDES
  6. SUTENT [Suspect]
     Active Substance: SUNITINIB MALATE
     Indication: RENAL CELL CARCINOMA
     Dosage: 50 MG CYCLICAL
  7. GRAVOL [Concomitant]
     Active Substance: DIMENHYDRINATE
  8. ZOFRAN /00955301/ [Concomitant]
     Active Substance: ONDANSETRON HYDROCHLORIDE
  9. HYDROMORPHONE HYDROCHLORIDE. [Suspect]
     Active Substance: HYDROMORPHONE HYDROCHLORIDE
     Indication: PRODUCT USED FOR UNKNOWN INDICATION
  10. FIXMYSKIN HEALING BALM VANILLA FRAGRANCE [Concomitant]
     Active Substance: HYDROCORTISONE
  11. METOCLOPRAMIDE. [Concomitant]
     Active Substance: METOCLOPRAMIDE
  12. NORVASC [Concomitant]
     Active Substance: AMLODIPINE BESYLATE
  13. RED BLOOD CELLS [Concomitant]
     Active Substance: HUMAN RED BLOOD CELL
  14. HYDROMORPH CONTIN [Concomitant]
     Active Substance: HYDROMORPHONE
  15. HYDROMORPHONE [Concomitant]
     Active Substance: HYDROMORPHONE
  16. ABREVA [Concomitant]
     Active Substance: DOCOSANOL
  17. STEMETIL /00013301/ [Concomitant]
  18. FLORINEF ACETATE [Concomitant]
     Active Substance: FLUDROCORTISONE ACETATE
  19. GLYCERIN /00200601/ [Concomitant]

REACTIONS (1)
  - Constipation [None]
